FAERS Safety Report 5427409-1 (Version None)
Quarter: 2007Q3

REPORT INFORMATION
  Report Type: 
  Country: None (occurrence: None)
  Receive Date: 20070828
  Receipt Date: 20070821
  Transmission Date: 20080115
  Serious: Yes (Hospitalization)
  Sender: FDA-Public Use
  Company Number: US-ASTRAZENECA-2007UW20090

PATIENT
  Age: 80 Year
  Sex: Male

DRUGS (2)
  1. SYMBICORT PMDI [Suspect]
     Dosage: 160/4.5 UG
     Route: 055
  2. TUSSORGA [Concomitant]

REACTIONS (1)
  - OEDEMA PERIPHERAL [None]
